FAERS Safety Report 8260656-2 (Version None)
Quarter: 2012Q2

REPORT INFORMATION
  Report Type: 
  Country: None (occurrence: None)
  Receive Date: 20120405
  Receipt Date: 20120322
  Transmission Date: 20120825
  Serious: Yes (Hospitalization, Other)
  Sender: FDA-Public Use
  Company Number: FR-AMGEN-FRASP2011067141

PATIENT
  Age: 55 Year
  Sex: Female

DRUGS (4)
  1. ARAVA [Suspect]
     Dosage: 20 MG, 1X/DAY
     Route: 048
     Dates: start: 20110622
  2. ARAVA [Suspect]
     Dosage: 20 MG, 1X/DAY
     Route: 048
     Dates: start: 20110622, end: 20111101
  3. ENBREL [Suspect]
     Indication: PRODUCT USED FOR UNKNOWN INDICATION
     Dosage: 50 MG, WEEKLY
     Route: 058
     Dates: start: 20081101, end: 20111019
  4. ARAVA [Suspect]
     Dosage: 20 MG, 1X/DAY
     Dates: start: 20120227

REACTIONS (3)
  - PSORIATIC ARTHROPATHY [None]
  - PUSTULAR PSORIASIS [None]
  - RHEUMATOID ARTHRITIS [None]
